FAERS Safety Report 19936387 (Version 2)
Quarter: 2021Q4

REPORT INFORMATION
  Report Type: Spontaneous
  Country: US (occurrence: US)
  Receive Date: 20211008
  Receipt Date: 20211008
  Transmission Date: 20220303
  Serious: No
  Sender: FDA-Public Use
  Company Number: US-SPROUT PHARMACEUTICALS, INC.-2021SP000197

PATIENT
  Sex: Female

DRUGS (2)
  1. ADDYI [Suspect]
     Active Substance: FLIBANSERIN
     Indication: Libido decreased
     Route: 048
     Dates: start: 202101, end: 202107
  2. Testosterone Replacement Therapy [Concomitant]
     Indication: Product used for unknown indication

REACTIONS (2)
  - Therapeutic response unexpected [Recovered/Resolved]
  - Drug ineffective [Unknown]
